FAERS Safety Report 4958571-2 (Version None)
Quarter: 2006Q1

REPORT INFORMATION
  Report Type: 
  Country: None (occurrence: None)
  Receive Date: 20060330
  Receipt Date: 20060320
  Transmission Date: 20060701
  Serious: Yes (Hospitalization)
  Sender: FDA-Public Use
  Company Number: AU-NOVOPROD-251830

PATIENT
  Age: 16 Year
  Sex: Male
  Weight: 48 kg

DRUGS (1)
  1. NORDITROPIN SIMPLEXX [Suspect]
     Indication: DRUG USE FOR UNKNOWN INDICATION
     Dates: start: 20041224

REACTIONS (4)
  - BLOOD IMMUNOGLOBULIN E INCREASED [None]
  - DIARRHOEA [None]
  - NAUSEA [None]
  - VOMITING [None]
